FAERS Safety Report 21548789 (Version 2)
Quarter: 2022Q4

REPORT INFORMATION
  Report Type: Spontaneous
  Country: US (occurrence: US)
  Receive Date: 20221103
  Receipt Date: 20221119
  Transmission Date: 20230112
  Serious: Yes (Death, Hospitalization)
  Sender: FDA-Public Use
  Company Number: US-TEVA-2022-US-2821436

PATIENT
  Age: 62 Year
  Sex: Male

DRUGS (3)
  1. WARFARIN [Suspect]
     Active Substance: WARFARIN
     Indication: Anticoagulant therapy
     Route: 065
  2. VITAMIN K [Concomitant]
     Active Substance: PHYTONADIONE
     Indication: Procoagulant therapy
     Dosage: ADDITIONAL INFO: ROUTE: {PARENTRAL}
     Route: 050
  3. FRESH FROZEN PLASMA [Concomitant]
     Active Substance: HUMAN PLASMA
     Indication: Procoagulant therapy
     Dosage: 1 IU
     Route: 065

REACTIONS (7)
  - Subdural haematoma [Fatal]
  - Anticoagulation drug level above therapeutic [Recovered/Resolved]
  - Hemiparesis [Unknown]
  - Encephalopathy [Unknown]
  - Status epilepticus [Unknown]
  - Bradycardia [Unknown]
  - Cardiogenic shock [Unknown]
